FAERS Safety Report 8036624 (Version 2)
Quarter: 2012Q4

REPORT INFORMATION
  Report Type: 
  Country: US (occurrence: US)
  Receive Date: 20110715
  Receipt Date: 20121214
  Transmission Date: 20130627
  Serious: Yes (Hospitalization, Other)
  Sender: FDA-Public Use
  Company Number: US-ELI_LILLY_AND_COMPANY-US201107002487

PATIENT
  Age: 51 None
  Sex: Female

DRUGS (7)
  1. BYETTA [Suspect]
     Dosage: UNK
     Dates: end: 200912
  2. GLUCOTROL [Concomitant]
     Dosage: UNK, bid
  3. ACTOS                                   /USA/ [Concomitant]
     Dosage: 15 mg, qd
  4. LASIX                                   /USA/ [Concomitant]
     Dosage: 120 mg, qd
  5. LISINOPRIL                              /USA/ [Concomitant]
     Dosage: UNK, qd
  6. LANTUS [Concomitant]
     Dosage: UNK, each evening
  7. VICODIN [Concomitant]
     Dosage: UNK, prn

REACTIONS (3)
  - Pancreatitis haemorrhagic [Recovered/Resolved]
  - Pancreatic insufficiency [Unknown]
  - Pancreatitis acute [Unknown]
